FAERS Safety Report 16110667 (Version 2)
Quarter: 2019Q1

REPORT INFORMATION
  Report Type: Spontaneous
  Country: JP (occurrence: JP)
  Receive Date: 20190325
  Receipt Date: 20190330
  Transmission Date: 20190418
  Serious: Yes (Other)
  Sender: FDA-Public Use
  Company Number: GXJP2019JP000704

PATIENT
  Sex: Female

DRUGS (9)
  1. RIFAMPICIN CAPSULES [Suspect]
     Active Substance: RIFAMPIN
     Indication: LYMPH NODE TUBERCULOSIS
     Dosage: UNK
     Route: 048
  2. RIFAMPICIN CAPSULES [Interacting]
     Active Substance: RIFAMPIN
     Dosage: UNK
     Route: 048
     Dates: start: 20190204, end: 20190213
  3. RIFAMPICIN CAPSULES [Interacting]
     Active Substance: RIFAMPIN
     Dosage: UNK
     Route: 048
     Dates: start: 20181112, end: 20181119
  4. CRESTOR [Concomitant]
     Active Substance: ROSUVASTATIN CALCIUM
     Indication: PRODUCT USED FOR UNKNOWN INDICATION
     Dosage: UNK
     Route: 065
     Dates: start: 20190107
  5. NORVASC [Interacting]
     Active Substance: AMLODIPINE BESYLATE
     Indication: PRODUCT USED FOR UNKNOWN INDICATION
     Dosage: 10 MG, UNK
     Route: 065
     Dates: start: 20190107
  6. FAMOTIDINE. [Concomitant]
     Active Substance: FAMOTIDINE
     Indication: PRODUCT USED FOR UNKNOWN INDICATION
     Dosage: UNK
     Route: 065
     Dates: start: 20181126
  7. VITAMEDIN INTRAVENOUS [Concomitant]
     Active Substance: CYANOCOBALAMIN\PYRIDOXINE HYDROCHLORIDE\THIAMINE
     Indication: PRODUCT USED FOR UNKNOWN INDICATION
     Dosage: UNK
     Route: 065
     Dates: start: 20190107
  8. KANAMYCIN [Concomitant]
     Active Substance: KANAMYCIN\KANAMYCIN A SULFATE
     Indication: LYMPH NODE TUBERCULOSIS
     Dosage: UNK, 3 TIMES A WEEK
     Route: 030
     Dates: start: 20180921
  9. ISCOTIN [Concomitant]
     Active Substance: ISONIAZID
     Indication: LYMPH NODE TUBERCULOSIS
     Dosage: UNK
     Route: 065
     Dates: start: 20181119

REACTIONS (4)
  - Drug interaction [Unknown]
  - Blood pressure increased [Recovered/Resolved]
  - Pruritus generalised [Recovered/Resolved]
  - Blood pressure increased [Recovered/Resolved]

NARRATIVE: CASE EVENT DATE: 20181119
